FAERS Safety Report 7540011-0 (Version None)
Quarter: 2011Q2

REPORT INFORMATION
  Report Type: 
  Country: None (occurrence: None)
  Receive Date: 20110610
  Receipt Date: 20110606
  Transmission Date: 20111010
  Serious: Yes (Hospitalization)
  Sender: FDA-Public Use
  Company Number: US-ACTELION-A-US2010-34682

PATIENT

DRUGS (20)
  1. PROVENTIL [Concomitant]
  2. OCEAN NASAL [Concomitant]
  3. LUMIGAN [Concomitant]
  4. OXYGEN [Concomitant]
  5. NOVOLOG [Concomitant]
  6. INSULIN LISPRO [Concomitant]
  7. TRACLEER [Suspect]
     Indication: PULMONARY ARTERIAL HYPERTENSION
     Dosage: 125 MG, BID
     Route: 048
     Dates: start: 20100809, end: 20110325
  8. LEVOTHYROXINE SODIUM [Concomitant]
  9. ALDACTONE [Concomitant]
  10. AMARYL [Concomitant]
  11. TORSEMIDE [Concomitant]
  12. CALCIUM CHANNEL BLOCKERS [Concomitant]
  13. TRACLEER [Suspect]
     Dosage: 62.5 MG, BID
     Route: 048
     Dates: start: 20091201, end: 20100809
  14. LANTUS [Concomitant]
  15. REVATIO [Concomitant]
  16. COLECALCIFEROL [Concomitant]
  17. LASIX [Concomitant]
  18. THEOPHYLLINE [Concomitant]
  19. KEFLEX [Concomitant]
  20. CRESTOR [Concomitant]

REACTIONS (13)
  - LIVER FUNCTION TEST ABNORMAL [None]
  - EPISTAXIS [None]
  - HYPONATRAEMIA [None]
  - FLUID RETENTION [None]
  - OEDEMA PERIPHERAL [None]
  - CONDITION AGGRAVATED [None]
  - WEIGHT INCREASED [None]
  - OXYGEN SATURATION DECREASED [None]
  - COUGH [None]
  - DYSPNOEA [None]
  - BLOOD CREATININE INCREASED [None]
  - CHEST PAIN [None]
  - DIZZINESS [None]
